FAERS Safety Report 7693261-7 (Version None)
Quarter: 2011Q3

REPORT INFORMATION
  Report Type: 
  Country: None (occurrence: None)
  Receive Date: 20110819
  Receipt Date: 20110808
  Transmission Date: 20111222
  Serious: Yes (Other)
  Sender: FDA-Public Use
  Company Number: PHHY2011DE68719

PATIENT
  Sex: Male
  Weight: 72 kg

DRUGS (10)
  1. ONBREZ [Suspect]
     Indication: CHRONIC OBSTRUCTIVE PULMONARY DISEASE
     Dosage: 150 UG, QD
     Dates: start: 20100902, end: 20101103
  2. BONIVA [Concomitant]
     Dosage: 1 DF, QMO
  3. ALLOPURINOL [Concomitant]
     Indication: HYPERURICAEMIA
     Dosage: 300 MG, QD
     Route: 048
  4. BUDECORT [Concomitant]
     Dosage: 2 DF, QD
  5. BISOPROLOL FUMARATE [Concomitant]
     Indication: HYPERTENSION
     Dosage: 5 MG, QD
     Route: 048
  6. CLOPIDOGREL [Concomitant]
  7. HYDROCHLOROTHIAZIDE [Suspect]
     Indication: HYPERTENSION
     Dosage: 25 MG, QD
     Route: 048
  8. TORSEMIDE [Concomitant]
     Route: 048
  9. RAMIPRIL [Concomitant]
     Indication: HYPERTENSION
     Dosage: 2.5 MG, QD
     Route: 048
  10. SPIRIVA [Concomitant]

REACTIONS (1)
  - VENTRICULAR EXTRASYSTOLES [None]
